FAERS Safety Report 6663213-4 (Version None)
Quarter: 2010Q2

REPORT INFORMATION
  Report Type: 
  Country: None (occurrence: None)
  Receive Date: 20100401
  Receipt Date: 20100324
  Transmission Date: 20101027
  Serious: No
  Sender: FDA-Public Use
  Company Number: PHEH2010US03192

PATIENT
  Sex: Female
  Weight: 87.982 kg

DRUGS (3)
  1. RECLAST [Suspect]
     Indication: OSTEOPOROSIS
     Dosage: 5 MG IV
     Route: 042
     Dates: start: 20100317
  2. METFORMIN (GLUCOPHAGE) [Concomitant]
     Indication: DIABETES MELLITUS
     Dosage: UNK
     Dates: start: 20070101
  3. JANUVIA [Concomitant]
     Indication: DIABETES MELLITUS
     Dosage: UNK
     Dates: start: 20070101

REACTIONS (2)
  - PAIN [None]
  - PSEUDOPARALYSIS [None]
